FAERS Safety Report 9454038 (Version 1)
Quarter: 2013Q3

REPORT INFORMATION
  Report Type: Spontaneous
  Country: US (occurrence: None)
  Receive Date: 20130809
  Receipt Date: 20130809
  Transmission Date: 20140515
  Serious: No
  Sender: FDA-Public Use
  Company Number: None

PATIENT
  Sex: Female

DRUGS (5)
  1. XOLAIR [Suspect]
     Dosage: RECONSTITUTE THE VIAL WITH 1.4ML STERILE WATER FOR INJECTION AND INJECT 150MG (1.2ML) SUBQ EVERY 4 WEEKS
  2. DULERA [Concomitant]
  3. SINGULAIR [Concomitant]
  4. LEVOTHYROXIN [Concomitant]
  5. PROAIR [Concomitant]

REACTIONS (1)
  - Syncope [None]
